FAERS Safety Report 6072601-9 (Version None)
Quarter: 2009Q1

REPORT INFORMATION
  Report Type: 
  Country: None (occurrence: None)
  Receive Date: 20090210
  Receipt Date: 20090205
  Transmission Date: 20090719
  Serious: Yes (Life-Threatening, Hospitalization)
  Sender: FDA-Public Use
  Company Number: GB-ELI_LILLY_AND_COMPANY-GB200902000960

PATIENT
  Age: 65 Year
  Sex: Male
  Weight: 101 kg

DRUGS (23)
  1. BYETTA [Suspect]
     Dosage: 5 UG, 2/D
     Route: 058
     Dates: start: 20090106, end: 20090118
  2. ASPIRIN [Concomitant]
     Indication: PROPHYLAXIS
     Dosage: 75 MG, DAILY (1/D)
     Route: 065
  3. CALCICHEW D3 [Concomitant]
     Indication: OSTEOPOROSIS
     Dosage: 1 D/F, 2/D
     Route: 065
  4. CARBAMAZEPINE [Concomitant]
     Indication: CONVULSION
     Dosage: 300 MG, DAILY (1/D)
     Route: 065
  5. CYCLIZINE [Concomitant]
     Indication: MALAISE
     Dosage: 50 MG, 3/D
     Route: 065
  6. DESLORATADINE [Concomitant]
     Indication: RASH
     Dosage: 5 MG, DAILY (1/D)
     Route: 065
  7. DEXTROSE [Concomitant]
     Dosage: 40 %, AS NEEDED
     Route: 065
  8. E45 ITCH RELIEF [Concomitant]
     Indication: DRY SKIN
     Dosage: UNK, UNKNOWN
     Route: 065
  9. EMULSIFYING OINTMENT [Concomitant]
     Indication: DRY SKIN
     Dosage: UNK, UNKNOWN
     Route: 065
  10. LANSOPRAZOLE [Concomitant]
     Indication: PROPHYLAXIS
     Dosage: 30 MG, DAILY (1/D)
     Route: 065
  11. METFORMIN HCL [Concomitant]
     Dosage: 1 G, 2/D
     Route: 065
  12. MORPHINE [Concomitant]
     Indication: PAIN
     Dosage: 10 MG, 2/D
     Route: 065
  13. NULYTELY [Concomitant]
     Indication: CONSTIPATION
     Dosage: 1 D/F, UNKNOWN
     Route: 065
  14. MS CONTIN [Concomitant]
     Indication: PAIN
     Dosage: 60 MG, 2/D
     Route: 065
  15. PARACETAMOL [Concomitant]
     Indication: PAIN
     Dosage: 1 G, 4/D
     Route: 065
  16. PEPPERMINT OIL [Concomitant]
     Indication: ABDOMINAL RIGIDITY
     Dosage: UNK, 3/D
     Route: 065
  17. PEPTAC                             /01521901/ [Concomitant]
     Indication: ABDOMINAL DISCOMFORT
     Dosage: 10 ML, 4/D
     Route: 065
  18. RAMIPRIL [Concomitant]
     Indication: HYPERTENSION
     Dosage: 5 MG, DAILY (1/D)
     Route: 065
  19. RISEDRONIC ACID [Concomitant]
     Indication: OSTEOPOROSIS
     Dosage: 35 MG, WEEKLY (1/W)
     Route: 065
  20. SENNA [Concomitant]
     Indication: CONSTIPATION
     Dosage: 2 D/F, DAILY (1/D)
     Route: 065
  21. SIMVASTATIN [Concomitant]
     Indication: BLOOD CHOLESTEROL INCREASED
     Dosage: 40 MG, DAILY (1/D)
     Route: 065
  22. VALPROATE SODIUM [Concomitant]
     Indication: CONVULSION
     Dosage: 300 MG, 2/D
     Route: 065
  23. TOLTERODINE [Concomitant]
     Indication: URINARY INCONTINENCE
     Dosage: 4 MG, DAILY (1/D)
     Route: 065

REACTIONS (2)
  - DIABETIC KETOACIDOSIS [None]
  - MYOCARDIAL INFARCTION [None]
